FAERS Safety Report 7424500-5 (Version None)
Quarter: 2011Q2

REPORT INFORMATION
  Report Type: 
  Country: None (occurrence: None)
  Receive Date: 20110419
  Receipt Date: 20110412
  Transmission Date: 20111010
  Serious: Yes (Other)
  Sender: FDA-Public Use
  Company Number: US-SANOFI-AVENTIS-2011SA017492

PATIENT
  Age: 77 Year
  Sex: Male
  Weight: 84 kg

DRUGS (3)
  1. LANTUS [Suspect]
     Dosage: DOSE:42 UNIT(S)
     Route: 058
  2. LANTUS [Suspect]
     Dosage: DOSE:44 UNIT(S)
     Route: 058
  3. LANTUS [Suspect]
     Dosage: DOSE:28 UNIT(S)
     Route: 058

REACTIONS (2)
  - SURGERY [None]
  - CHEMOTHERAPY [None]
